FAERS Safety Report 23980819 (Version 2)
Quarter: 2025Q1

REPORT INFORMATION
  Report Type: Report from Study
  Country: US (occurrence: US)
  Receive Date: 20240617
  Receipt Date: 20250129
  Transmission Date: 20250408
  Serious: No
  Sender: TAKEDA
  Company Number: US-TAKEDA-2024TUS058745

PATIENT
  Sex: Female

DRUGS (21)
  1. PONATINIB [Suspect]
     Active Substance: PONATINIB
     Indication: Acute lymphocytic leukaemia (in remission)
     Dosage: 15 MILLIGRAM, QD
  2. PONATINIB [Suspect]
     Active Substance: PONATINIB
     Dosage: 15 MILLIGRAM, QD
  3. LYRICA [Concomitant]
     Active Substance: PREGABALIN
  4. MAGNESIUM CITRATE [Concomitant]
     Active Substance: MAGNESIUM CITRATE
  5. HUMALOG [Concomitant]
     Active Substance: INSULIN LISPRO
  6. POTASSIUM CHLORIDE [Concomitant]
     Active Substance: POTASSIUM CHLORIDE
  7. FUROSEMIDE [Concomitant]
     Active Substance: FUROSEMIDE
  8. FENOFIBRATE [Concomitant]
     Active Substance: FENOFIBRATE
  9. TYLENOL [Concomitant]
     Active Substance: ACETAMINOPHEN
  10. CRANBERRY [Concomitant]
     Active Substance: CRANBERRY
  11. VITAMIN C [Concomitant]
     Active Substance: ASCORBIC ACID
  12. OMEGA 3 [Concomitant]
     Active Substance: CAPSAICIN
  13. VITAMIN D3 [Concomitant]
     Active Substance: CHOLECALCIFEROL
  14. LASIX [Concomitant]
     Active Substance: FUROSEMIDE
  15. CRESTOR [Concomitant]
     Active Substance: ROSUVASTATIN CALCIUM
  16. MACROBID [Concomitant]
     Active Substance: NITROFURANTOIN\NITROFURANTOIN MONOHYDRATE
  17. VITAMIN B12 [Concomitant]
     Active Substance: CYANOCOBALAMIN
  18. SIMETHICONE (DIMETHICONE) [Concomitant]
     Active Substance: DIMETHICONE
  19. PROBIOTICS NOS [Concomitant]
     Active Substance: PROBIOTICS NOS
  20. LINZESS [Concomitant]
     Active Substance: LINACLOTIDE
  21. LEVOTHYROXINE SODIUM [Concomitant]
     Active Substance: LEVOTHYROXINE SODIUM

REACTIONS (2)
  - No adverse event [Unknown]
  - Product dose omission issue [Unknown]
